FAERS Safety Report 9676483 (Version 2)
Quarter: 2014Q1

REPORT INFORMATION
  Report Type: Spontaneous
  Country: US (occurrence: US)
  Receive Date: 20131107
  Receipt Date: 20140124
  Transmission Date: 20141002
  Serious: No
  Sender: FDA-Public Use
  Company Number: US-PFIZER INC-2013317585

PATIENT
  Age: 64 Year
  Sex: Female

DRUGS (11)
  1. XELJANZ [Suspect]
     Indication: RHEUMATOID ARTHRITIS
     Dosage: 5 MG, 2X/DAY
     Route: 048
     Dates: start: 201310
  2. PLAQUENIL [Concomitant]
     Dosage: 200 MG, UNK
  3. EVOXAC [Concomitant]
     Dosage: 30 MG, UNK
  4. LIDODERM [Concomitant]
     Dosage: 5 %, UNK
  5. LORTAB [Concomitant]
     Dosage: UNK, (LORTAB 7.5 TAB)
  6. FLONASE [Concomitant]
     Dosage: UNK, (FLONASE SPR 0.05%)
  7. RESTASIS [Concomitant]
     Dosage: UNK, (RESTASIS EMU. 0.05%)
  8. CLIMARA [Concomitant]
     Dosage: UNK, (CLIMARA PRO DIS WEEKLY)
  9. VITAMIN D [Concomitant]
     Dosage: 400 IU, UNK
  10. CALCIUM WITH VITAMIN D [Concomitant]
     Dosage: UNK
  11. VITAMIN E [Concomitant]
     Dosage: 100 IU, UNK

REACTIONS (3)
  - Drug ineffective [Unknown]
  - Fatigue [Unknown]
  - Abdominal discomfort [Recovered/Resolved]
